FAERS Safety Report 8582724-8 (Version None)
Quarter: 2012Q3

REPORT INFORMATION
  Report Type: 
  Country: None (occurrence: None)
  Receive Date: 20120809
  Receipt Date: 20120730
  Transmission Date: 20120928
  Serious: No
  Sender: FDA-Public Use
  Company Number: US-ASTRAZENECA-2012SE54393

PATIENT
  Age: 59 Year
  Sex: Female

DRUGS (5)
  1. POTASSIUM CHLORIDE [Concomitant]
  2. DYAZIDE [Concomitant]
  3. ZETIA [Concomitant]
  4. TOPROL-XL [Suspect]
     Route: 048
  5. PRINIVIL [Suspect]

REACTIONS (8)
  - BLOOD CHOLESTEROL INCREASED [None]
  - DIZZINESS [None]
  - CHEST DISCOMFORT [None]
  - SUPRAVENTRICULAR TACHYCARDIA [None]
  - DIABETES MELLITUS [None]
  - PRESYNCOPE [None]
  - MENIERE'S DISEASE [None]
  - ARRHYTHMIA [None]
